FAERS Safety Report 25200436 (Version 1)
Quarter: 2025Q2

REPORT INFORMATION
  Report Type: Other
  Country: IT (occurrence: IT)
  Receive Date: 20250415
  Receipt Date: 20250415
  Transmission Date: 20250716
  Serious: Yes (Other)
  Sender: LYNE LABORATORIES
  Company Number: IT-Lyne Laboratories Inc.-2174840

PATIENT
  Age: 54 Year
  Sex: Male

DRUGS (12)
  1. DEXAMETHASONE [Suspect]
     Active Substance: DEXAMETHASONE
     Indication: Plasma cell myeloma
  2. BORTEZOMIB [Suspect]
     Active Substance: BORTEZOMIB
  3. TALQUETAMAB [Concomitant]
     Active Substance: TALQUETAMAB
  4. TRANEXAMIC ACID [Concomitant]
     Active Substance: TRANEXAMIC ACID
  5. VITAMIN K1 [Concomitant]
     Active Substance: PHYTONADIONE
  6. CYCLOPHOSPHAMIDE [Suspect]
     Active Substance: CYCLOPHOSPHAMIDE
  7. POMALIDOMIDE [Suspect]
     Active Substance: POMALIDOMIDE
  8. ELOTUZUMAB [Suspect]
     Active Substance: ELOTUZUMAB
  9. CARFILZOMIB [Suspect]
     Active Substance: CARFILZOMIB
  10. ISATUXIMAB [Suspect]
     Active Substance: ISATUXIMAB
  11. LENALIDOMIDE [Suspect]
     Active Substance: LENALIDOMIDE
  12. THALIDOMIDE [Suspect]
     Active Substance: THALIDOMIDE

REACTIONS (2)
  - Neutropenia [Unknown]
  - Product use in unapproved indication [Unknown]
